FAERS Safety Report 4635327-1 (Version None)
Quarter: 2005Q2

REPORT INFORMATION
  Report Type: 
  Country: None (occurrence: None)
  Receive Date: 20050411
  Receipt Date: 20050330
  Transmission Date: 20051028
  Serious: Yes (Other)
  Sender: FDA-Public Use
  Company Number: HQWYE646904APR05

PATIENT
  Age: 22 Year

DRUGS (2)
  1. EFFEXOR [Suspect]
     Dosage: OVERDOSE AMOUNT UNKNOWN; ORAL
     Route: 048
  2. ZOLOFT [Suspect]
     Dosage: OVERDOSE AMOUNT UNKNOWN; ORAL
     Route: 048

REACTIONS (2)
  - MULTIPLE DRUG OVERDOSE [None]
  - SEROTONIN SYNDROME [None]
